FAERS Safety Report 8347974-4 (Version None)
Quarter: 2012Q2

REPORT INFORMATION
  Report Type: 
  Country: None (occurrence: None)
  Receive Date: 20120509
  Receipt Date: 20120425
  Transmission Date: 20120825
  Serious: No
  Sender: FDA-Public Use
  Company Number: US-BAYER-2012-042668

PATIENT
  Age: 57 Year
  Sex: Female
  Weight: 136 kg

DRUGS (9)
  1. LOSARTAN POTASSIUM [Concomitant]
  2. SIMVASTATIN [Concomitant]
  3. ADVAIR DISKUS 100/50 [Concomitant]
  4. ALBUTEROL [Concomitant]
  5. SINGULAIR [Concomitant]
  6. METFORMIN HCL [Concomitant]
  7. SPIRIVA [Concomitant]
  8. NAPROXEN SODIUM [Suspect]
     Indication: ANALGESIC THERAPY
     Dosage: 2 U, PRN
     Route: 048
     Dates: start: 20120328
  9. VICTOZA [Concomitant]

REACTIONS (1)
  - NO ADVERSE EVENT [None]
